FAERS Safety Report 12100550 (Version 2)
Quarter: 2016Q1

REPORT INFORMATION
  Report Type: Spontaneous
  Country: FI (occurrence: FI)
  Receive Date: 20160222
  Receipt Date: 20160310
  Transmission Date: 20160526
  Serious: Yes (Hospitalization)
  Sender: FDA-Public Use
  Company Number: FI-PFIZER INC-2016100154

PATIENT
  Age: 69 Year
  Sex: Male

DRUGS (2)
  1. LYRICA [Suspect]
     Active Substance: PREGABALIN
     Dosage: 75 MG, 2X/DAY
  2. SOMAC [Suspect]
     Active Substance: PANTOPRAZOLE SODIUM
     Dosage: UNK

REACTIONS (2)
  - Condition aggravated [Unknown]
  - Drug eruption [Unknown]
